FAERS Safety Report 9504261 (Version 2)
Quarter: 2013Q3

REPORT INFORMATION
  Report Type: Report from Study
  Country: IN (occurrence: IN)
  Receive Date: 20130906
  Receipt Date: 20130930
  Transmission Date: 20140515
  Serious: Yes (Death)
  Sender: FDA-Public Use
  Company Number: IN-GLAXOSMITHKLINE-B0920799A

PATIENT
  Age: 53 Year
  Sex: Female

DRUGS (2)
  1. TYKERB [Suspect]
     Indication: BREAST CANCER METASTATIC
     Dosage: 1000MG PER DAY
     Route: 065
  2. STEROID [Concomitant]

REACTIONS (3)
  - Aphagia [Not Recovered/Not Resolved]
  - Abasia [Not Recovered/Not Resolved]
  - Disease progression [Fatal]
